FAERS Safety Report 7873560-6 (Version None)
Quarter: 2011Q4

REPORT INFORMATION
  Report Type: 
  Country: None (occurrence: None)
  Receive Date: 20111030
  Receipt Date: 20110505
  Transmission Date: 20120403
  Serious: No
  Sender: FDA-Public Use
  Company Number: US-AMGEN-USASP2011023453

PATIENT
  Age: 45 Year
  Sex: Male

DRUGS (1)
  1. ENBREL [Suspect]
     Indication: RHEUMATOID ARTHRITIS
     Dosage: 50 MG, QWK
     Dates: start: 20090505

REACTIONS (8)
  - INFLUENZA LIKE ILLNESS [None]
  - TOOTH EROSION [None]
  - CHONDROPATHY [None]
  - TOOTH LOSS [None]
  - WEIGHT DECREASED [None]
  - HAND DEFORMITY [None]
  - BONE LOSS [None]
  - TOOTH INFECTION [None]
